FAERS Safety Report 19972898 (Version 1)
Quarter: 2021Q4

REPORT INFORMATION
  Report Type: Spontaneous
  Country: US (occurrence: US)
  Receive Date: 20211018
  Receipt Date: 20211018
  Transmission Date: 20220303
  Serious: Yes (Hospitalization)
  Sender: FDA-Public Use
  Company Number: None

PATIENT
  Age: 66 Year
  Sex: Female

DRUGS (7)
  1. XELJANZ XR [Suspect]
     Active Substance: TOFACITINIB CITRATE
     Indication: Asthma
     Route: 048
     Dates: start: 20200911
  2. ESTRADIOL [Concomitant]
     Active Substance: ESTRADIOL
  3. FOLIC ACID [Concomitant]
     Active Substance: FOLIC ACID
  4. IBUPROFEN [Concomitant]
     Active Substance: IBUPROFEN
  5. METHOTREXATE [Concomitant]
     Active Substance: METHOTREXATE
  6. SERTRALINE [Concomitant]
     Active Substance: SERTRALINE HYDROCHLORIDE
  7. VITAMIN D [Concomitant]
     Active Substance: VITAMIN D NOS

REACTIONS (8)
  - Nephrolithiasis [None]
  - Urinary tract infection [None]
  - Bronchitis [None]
  - Asthma [None]
  - Carpal tunnel syndrome [None]
  - Depression [None]
  - Hyperlipidaemia [None]
  - Immune system disorder [None]

NARRATIVE: CASE EVENT DATE: 20211001
